FAERS Safety Report 19367192 (Version 1)
Quarter: 2021Q2

REPORT INFORMATION
  Report Type: Spontaneous
  Country: US (occurrence: US)
  Receive Date: 20210603
  Receipt Date: 20210603
  Transmission Date: 20210717
  Serious: Yes (Other)
  Sender: FDA-Public Use
  Company Number: US-PURDUE-USA-2021-0265727

PATIENT
  Sex: Female

DRUGS (2)
  1. COLACE [Suspect]
     Active Substance: DOCUSATE SODIUM
     Indication: PRODUCT USED FOR UNKNOWN INDICATION
     Route: 048
  2. COLACE CLEAR [Suspect]
     Active Substance: DOCUSATE SODIUM
     Indication: FAECES HARD
     Dosage: UNK
     Route: 048
     Dates: start: 202105

REACTIONS (3)
  - Faeces hard [Unknown]
  - Pelvic prolapse [Unknown]
  - Pelvic operation [Unknown]

NARRATIVE: CASE EVENT DATE: 202105
